FAERS Safety Report 7009235-5 (Version None)
Quarter: 2010Q3

REPORT INFORMATION
  Report Type: 
  Country: None (occurrence: None)
  Receive Date: 20100923
  Receipt Date: 20100913
  Transmission Date: 20110219
  Serious: Yes (Other)
  Sender: FDA-Public Use
  Company Number: GB-SANOFI-AVENTIS-A01200903189

PATIENT
  Sex: Male

DRUGS (3)
  1. OXALIPLATIN [Suspect]
     Route: 065
  2. CAPECITABINE [Suspect]
     Route: 065
  3. AVASTIN [Suspect]
     Route: 065

REACTIONS (1)
  - GASTRIC PERFORATION [None]
